FAERS Safety Report 5091592-0 (Version None)
Quarter: 2006Q3

REPORT INFORMATION
  Report Type: 
  Country: None (occurrence: None)
  Receive Date: 20060829
  Receipt Date: 20060825
  Transmission Date: 20061208
  Serious: Yes (Hospitalization)
  Sender: FDA-Public Use
  Company Number: US-GLAXOSMITHKLINE-A0618199A

PATIENT
  Age: 41 Year
  Sex: Female

DRUGS (2)
  1. TUMS [Suspect]
     Route: 048
     Dates: end: 20060801
  2. MULTI-VITAMIN [Concomitant]

REACTIONS (9)
  - BLOOD PRESSURE INCREASED [None]
  - DEHYDRATION [None]
  - ELECTROLYTE IMBALANCE [None]
  - FATIGUE [None]
  - HEADACHE [None]
  - HYPERCALCAEMIA [None]
  - MIGRAINE [None]
  - PAIN [None]
  - VISION BLURRED [None]
